FAERS Safety Report 6187233-1 (Version None)
Quarter: 2009Q2

REPORT INFORMATION
  Report Type: 
  Country: None (occurrence: None)
  Receive Date: 20090512
  Receipt Date: 20090507
  Transmission Date: 20091009
  Serious: Yes (Death)
  Sender: FDA-Public Use
  Company Number: PHHY2009MX17559

PATIENT
  Age: 67 Year
  Sex: Female

DRUGS (1)
  1. DIOVAN HCT [Suspect]
     Indication: HYPERTENSION
     Dosage: 1 DF (160/12.5 MG)/DAY
     Route: 048
     Dates: start: 20040301, end: 20080301

REACTIONS (1)
  - HEPATIC NEOPLASM MALIGNANT [None]
